FAERS Safety Report 25758157 (Version 3)
Quarter: 2025Q4

REPORT INFORMATION
  Report Type: Spontaneous
  Country: EU (occurrence: EU)
  Receive Date: 20250904
  Receipt Date: 20251006
  Transmission Date: 20260117
  Serious: Yes (Other)
  Sender: SANDOZ
  Company Number: EU-AMGEN-ESPSP2025155223

PATIENT
  Age: 23 Year
  Sex: Female

DRUGS (2)
  1. ETANERCEPT [Suspect]
     Active Substance: ETANERCEPT
     Dosage: 50 MG, QW
     Route: 065
     Dates: start: 201302
  2. ETANERCEPT [Suspect]
     Active Substance: ETANERCEPT
     Indication: SAPHO syndrome
     Dosage: UNK
     Route: 065

REACTIONS (5)
  - Hidradenitis [Unknown]
  - Pain [Unknown]
  - Pain in jaw [Unknown]
  - Post procedural complication [Unknown]
  - Off label use [Unknown]
